FAERS Safety Report 4836312-7 (Version None)
Quarter: 2005Q4

REPORT INFORMATION
  Report Type: 
  Country: None (occurrence: None)
  Receive Date: 20051121
  Receipt Date: 20051121
  Transmission Date: 20060501
  Serious: Yes (Other)
  Sender: FDA-Public Use
  Company Number: None

PATIENT
  Age: 34 Year
  Sex: Male
  Weight: 83.9154 kg

DRUGS (3)
  1. ETODOLAC [Suspect]
     Indication: INFLAMMATION
     Dosage: 400 MG PO TID
     Route: 048
     Dates: start: 20051020, end: 20051024
  2. ETODOLAC [Suspect]
     Indication: PAIN
     Dosage: 400 MG PO TID
     Route: 048
     Dates: start: 20051020, end: 20051024
  3. CIPROFLOXACIN [Suspect]
     Indication: INFECTION PROPHYLAXIS
     Dosage: 500 MG PO BID
     Route: 048
     Dates: start: 20051020, end: 20051024

REACTIONS (6)
  - ABDOMINAL DISCOMFORT [None]
  - CONDITION AGGRAVATED [None]
  - DISCOMFORT [None]
  - DRY MOUTH [None]
  - FLANK PAIN [None]
  - POLYDIPSIA [None]
